FAERS Safety Report 8303673-6 (Version None)
Quarter: 2012Q2

REPORT INFORMATION
  Report Type: 
  Country: None (occurrence: None)
  Receive Date: 20120423
  Receipt Date: 20120417
  Transmission Date: 20120825
  Serious: Yes (Other)
  Sender: FDA-Public Use
  Company Number: US-PFIZER INC-2012069535

PATIENT
  Sex: Female

DRUGS (1)
  1. GEODON [Suspect]
     Dosage: 240 MG, 1X/DAY (80 MG 3 TAB PO QD)
     Route: 048

REACTIONS (1)
  - PSYCHIATRIC SYMPTOM [None]
